FAERS Safety Report 7927862-5 (Version None)
Quarter: 2011Q4

REPORT INFORMATION
  Report Type: 
  Country: None (occurrence: None)
  Receive Date: 20111118
  Receipt Date: 20111118
  Transmission Date: 20120403
  Serious: Yes (Hospitalization)
  Sender: FDA-Public Use
  Company Number: None

PATIENT
  Age: 75 Year
  Sex: Female
  Weight: 127 kg

DRUGS (10)
  1. BISACODYL SUPPOSITORY [Concomitant]
  2. MILK OF MAGNESIA TAB [Concomitant]
  3. METOPROLOL TARTRATE [Concomitant]
  4. MIRTAZAPINE [Concomitant]
  5. DABIGATRAN [Suspect]
     Indication: ATRIAL FIBRILLATION
     Dosage: 75 MG
     Route: 048
  6. NORCO [Concomitant]
  7. CLARITHROMYCIN [Concomitant]
  8. PANTOPRAZOLE [Concomitant]
  9. ACETAMENOPHEN, [Concomitant]
  10. AMOXICILLIN [Concomitant]

REACTIONS (9)
  - PAIN IN EXTREMITY [None]
  - GASTRITIS [None]
  - HAEMATOMA [None]
  - ANAEMIA [None]
  - GASTROINTESTINAL HAEMORRHAGE [None]
  - GASTROINTESTINAL ARTERIOVENOUS MALFORMATION [None]
  - DYSPNOEA [None]
  - FALL [None]
  - CHEST PAIN [None]
